FAERS Safety Report 8036938-6 (Version None)
Quarter: 2012Q1

REPORT INFORMATION
  Report Type: 
  Country: None (occurrence: None)
  Receive Date: 20120111
  Receipt Date: 20120103
  Transmission Date: 20120608
  Serious: Yes (Other)
  Sender: FDA-Public Use
  Company Number: US-ELI_LILLY_AND_COMPANY-US201201000319

PATIENT
  Sex: Male

DRUGS (2)
  1. HUMULIN N [Suspect]
     Dosage: 9 U, BID
     Route: 065
  2. HUMULIN N [Suspect]
     Indication: DIABETES MELLITUS
     Dosage: 9 U, BID
     Route: 065

REACTIONS (4)
  - CEREBROVASCULAR ACCIDENT [None]
  - MEMORY IMPAIRMENT [None]
  - HYPOACUSIS [None]
  - DEMENTIA ALZHEIMER'S TYPE [None]
